FAERS Safety Report 16583642 (Version 1)
Quarter: 2019Q3

REPORT INFORMATION
  Report Type: Spontaneous
  Country: DE (occurrence: DE)
  Receive Date: 20190717
  Receipt Date: 20190717
  Transmission Date: 20191004
  Serious: Yes (Hospitalization)
  Sender: FDA-Public Use
  Company Number: DE-TEVA-2019-DE-1077191

PATIENT
  Age: 57 Year
  Sex: Male

DRUGS (5)
  1. FOLSAEURE [Suspect]
     Active Substance: FOLIC ACID
     Dosage: 5 MG, 1-0-0-0
  2. SILDENAFIL. [Suspect]
     Active Substance: SILDENAFIL
     Dosage: 100 MG
     Route: 065
  3. BECLOMETASON-RATIOPHARM 0,25MG [Suspect]
     Active Substance: BECLOMETHASONE DIPROPIONATE
     Dosage: 0.25 MG, PAUSE
  4. ZINC. [Concomitant]
     Active Substance: ZINC
     Dosage: 15 MG, 0-1-0-0
  5. PANTOPRAZOL [Suspect]
     Active Substance: PANTOPRAZOLE SODIUM
     Dosage: 40 MG, 1-0-0-0

REACTIONS (4)
  - Flatulence [Unknown]
  - Abdominal pain [Unknown]
  - Nausea [Unknown]
  - Abdominal pain lower [Unknown]
